FAERS Safety Report 5787410-5 (Version None)
Quarter: 2008Q2

REPORT INFORMATION
  Report Type: 
  Country: None (occurrence: None)
  Receive Date: 20080623
  Receipt Date: 20080623
  Transmission Date: 20081010
  Serious: No
  Sender: FDA-Public Use
  Company Number: None

PATIENT
  Age: 58 Year
  Sex: Male
  Weight: 95.2554 kg

DRUGS (1)
  1. CLINDAMYCIN 150MG CAPS RANBAXY [Suspect]
     Indication: TOOTH INFECTION
     Dosage: 2 EVERY 8 HOURS
     Dates: start: 20080620, end: 20080621

REACTIONS (5)
  - ABDOMINAL PAIN UPPER [None]
  - DIARRHOEA [None]
  - HEADACHE [None]
  - MALAISE [None]
  - PAIN [None]
